FAERS Safety Report 10162316 (Version 1)
Quarter: 2014Q2

REPORT INFORMATION
  Report Type: Spontaneous
  Country: US (occurrence: None)
  Receive Date: 20140507
  Receipt Date: 20140507
  Transmission Date: 20141212
  Serious: Yes (Hospitalization)
  Sender: FDA-Public Use
  Company Number: COM-002189

PATIENT
  Age: 75 Year
  Sex: Female
  Weight: 67.13 kg

DRUGS (3)
  1. HYDROGEN PEROXIDE [Suspect]
     Indication: EAR IRRIGATION
     Route: 061
     Dates: start: 20140420
  2. CLARITN [Concomitant]
  3. BLOOD PRESSURE MEDICATION [Concomitant]

REACTIONS (5)
  - Ear swelling [None]
  - Skin discolouration [None]
  - Rash [None]
  - Product quality issue [None]
  - Hypersensitivity [None]
